FAERS Safety Report 18130041 (Version 1)
Quarter: 2020Q3

REPORT INFORMATION
  Report Type: Spontaneous
  Country: US (occurrence: US)
  Receive Date: 20200810
  Receipt Date: 20200810
  Transmission Date: 20201103
  Serious: Yes (Other)
  Sender: FDA-Public Use
  Company Number: None

PATIENT
  Age: 37 Year
  Sex: Female
  Weight: 76.5 kg

DRUGS (2)
  1. CEPHALEXIN. [Suspect]
     Active Substance: CEPHALEXIN
     Indication: SKIN INFECTION
     Dosage: ?          QUANTITY:1 CAPSULE(S);OTHER FREQUENCY:3 TIMES A DAY;?
     Route: 048
     Dates: start: 20200806, end: 20200807
  2. LO?OGESTREL [Concomitant]

REACTIONS (8)
  - Gastrointestinal disorder [None]
  - Chest pain [None]
  - Flatulence [None]
  - Fatigue [None]
  - Eructation [None]
  - Nausea [None]
  - Dyspepsia [None]
  - Malaise [None]

NARRATIVE: CASE EVENT DATE: 20200808
